FAERS Safety Report 25909114 (Version 8)
Quarter: 2025Q4

REPORT INFORMATION
  Report Type: Report from Study
  Country: EU (occurrence: EU)
  Receive Date: 20251011
  Receipt Date: 20251128
  Transmission Date: 20260119
  Serious: Yes (Hospitalization)
  Sender: ABBVIE
  Company Number: EU-ABBVIE-6497646

PATIENT
  Age: 84 Year
  Sex: Male

DRUGS (1)
  1. FOSCARBIDOPA\FOSLEVODOPA [Suspect]
     Active Substance: FOSCARBIDOPA\FOSLEVODOPA
     Indication: Parkinson^s disease
     Route: 058
     Dates: start: 20240917

REACTIONS (8)
  - Hip fracture [Recovered/Resolved]
  - Catheter site nodule [Not Recovered/Not Resolved]
  - Hallucination [Recovered/Resolved]
  - Catheter site erythema [Not Recovered/Not Resolved]
  - Disorientation [Not Recovered/Not Resolved]
  - Fall [Recovered/Resolved]
  - Pyrexia [Recovered/Resolved]
  - Catheter site warmth [Not Recovered/Not Resolved]

NARRATIVE: CASE EVENT DATE: 20250101
